FAERS Safety Report 18005118 (Version 1)
Quarter: 2020Q3

REPORT INFORMATION
  Report Type: Spontaneous
  Country: CA (occurrence: CA)
  Receive Date: 20200710
  Receipt Date: 20200710
  Transmission Date: 20201103
  Serious: Yes (Hospitalization, Other)
  Sender: FDA-Public Use
  Company Number: CA-BION-008842

PATIENT
  Age: 75 Year
  Sex: Female
  Weight: 70 kg

DRUGS (14)
  1. LATANOPROST. [Concomitant]
     Active Substance: LATANOPROST
  2. PYRIDOXINE [Concomitant]
     Active Substance: PYRIDOXINE
  3. CLONAZEPAM. [Concomitant]
     Active Substance: CLONAZEPAM
  4. ZOPICLONE [Concomitant]
     Active Substance: ZOPICLONE
  5. PARACETAMOL [Concomitant]
     Active Substance: ACETAMINOPHEN
  6. PREGABALIN. [Suspect]
     Active Substance: PREGABALIN
     Indication: ARTHRALGIA
  7. CALCIUM CARBONATE. [Concomitant]
     Active Substance: CALCIUM CARBONATE
  8. IPRATROPIUM [Concomitant]
     Active Substance: IPRATROPIUM
  9. COLECALCIFEROL [Concomitant]
     Active Substance: CHOLECALCIFEROL
  10. BRINZOLAMIDE\TIMOLOL [Suspect]
     Active Substance: BRINZOLAMIDE\TIMOLOL
     Indication: GLAUCOMA
  11. TELMISARTAN. [Concomitant]
     Active Substance: TELMISARTAN
  12. ATORVASTATIN [Concomitant]
     Active Substance: ATORVASTATIN
  13. NAPROXEN SODIUM. [Suspect]
     Active Substance: NAPROXEN SODIUM
     Indication: ARTHRALGIA
  14. ESTRADIOL. [Concomitant]
     Active Substance: ESTRADIOL

REACTIONS (1)
  - Toxic epidermal necrolysis [Recovered/Resolved]
